FAERS Safety Report 17555673 (Version 2)
Quarter: 2020Q2

REPORT INFORMATION
  Report Type: Spontaneous
  Country: DE (occurrence: DE)
  Receive Date: 20200318
  Receipt Date: 20200512
  Transmission Date: 20200713
  Serious: Yes (Disabling, Other)
  Sender: FDA-Public Use
  Company Number: DE-PFIZER INC-2020113678

PATIENT
  Sex: Male

DRUGS (1)
  1. CYTOTEC [Suspect]
     Active Substance: MISOPROSTOL
     Indication: LABOUR INDUCTION
     Dosage: 25 UG, 50UG, 50UG (IN THE PERIOD 10 AM TO 6 PM: INITIALLY 25 UG, AFTER 4H 50 UG AND ANOTHER 4H)
     Route: 064
     Dates: start: 20111120, end: 20111120

REACTIONS (3)
  - Neonatal asphyxia [Recovered/Resolved]
  - Foetal heart rate abnormal [Unknown]
  - Foetal exposure during delivery [Unknown]

NARRATIVE: CASE EVENT DATE: 2011
